FAERS Safety Report 23566509 (Version 1)
Quarter: 2024Q1

REPORT INFORMATION
  Report Type: Spontaneous
  Country: US (occurrence: US)
  Receive Date: 20240226
  Receipt Date: 20240226
  Transmission Date: 20240410
  Serious: No
  Sender: FDA-Public Use
  Company Number: US-AMNEAL PHARMACEUTICALS-2023-AMRX-00402

PATIENT
  Sex: Female
  Weight: 59.874 kg

DRUGS (9)
  1. RYTARY [Suspect]
     Active Substance: CARBIDOPA\LEVODOPA
     Indication: Parkinson^s disease
     Dosage: 36.25/145 MILLIGRAM, 2 CAPSULES, 1 /DAY
     Route: 065
     Dates: start: 202301
  2. PREDNISONE [Suspect]
     Active Substance: PREDNISONE
     Indication: Product used for unknown indication
     Route: 065
  3. PRIMIDONE [Concomitant]
     Active Substance: PRIMIDONE
     Indication: Tremor
     Dosage: 50 MILLIGRAM, QD (AT BEDTIME)
  4. METHOTREXATE [Concomitant]
     Active Substance: METHOTREXATE
     Indication: Rheumatoid arthritis
     Dosage: 2.5 MG, 06 PILLS A DAY ONCE IN A WEEK
  5. LORATADINE [Concomitant]
     Active Substance: LORATADINE
     Indication: Rash
  6. LORATADINE [Concomitant]
     Active Substance: LORATADINE
     Indication: Urticaria
  7. IBANDRONATE SODIUM [Concomitant]
     Active Substance: IBANDRONATE SODIUM
     Indication: Osteoporosis
     Dosage: UNK, 1 /MONTH
  8. VITAMINS NOS [Concomitant]
     Active Substance: VITAMINS
     Indication: Vitamin supplementation
     Dosage: UNK, QD
  9. MELATONIN [Concomitant]
     Active Substance: MELATONIN
     Indication: Product used for unknown indication
     Dosage: UNK, QD

REACTIONS (3)
  - Illness [Unknown]
  - Nausea [Not Recovered/Not Resolved]
  - Drug hypersensitivity [Unknown]
